FAERS Safety Report 7765322-5 (Version None)
Quarter: 2011Q3

REPORT INFORMATION
  Report Type: 
  Country: None (occurrence: None)
  Receive Date: 20110921
  Receipt Date: 20110908
  Transmission Date: 20111222
  Serious: Yes (Other)
  Sender: FDA-Public Use
  Company Number: US-BAYER-201036933NA

PATIENT
  Age: 31 Year
  Sex: Female
  Weight: 52.154 kg

DRUGS (6)
  1. YAZ [Suspect]
     Indication: CONTRACEPTION
     Dosage: UNK UNK, UNK
     Route: 048
     Dates: start: 20090601, end: 20100201
  2. NEWMAN'S NIPPLE OINTMENT [Concomitant]
     Dosage: UNK
     Route: 061
     Dates: start: 20090519
  3. CEPHALEXIN [Concomitant]
     Dosage: 500 MG, UNK
     Route: 048
     Dates: start: 20090614
  4. AMOXICILLIN [Concomitant]
     Dosage: 500 MG, UNK
     Route: 048
     Dates: start: 20090503
  5. BUPROPION HYDROCHLORIDE [Concomitant]
     Dosage: 200 MG, UNK
     Route: 048
     Dates: start: 20090227
  6. YASMIN [Suspect]
     Indication: CONTRACEPTION
     Dosage: UNK
     Route: 048
     Dates: start: 20050101, end: 20051001

REACTIONS (10)
  - MALAISE [None]
  - EMOTIONAL DISTRESS [None]
  - GALLBLADDER DISORDER [None]
  - CHOLELITHIASIS [None]
  - STARVATION [None]
  - FATIGUE [None]
  - APHAGIA [None]
  - WEIGHT DECREASED [None]
  - CHOLECYSTITIS CHRONIC [None]
  - DYSPEPSIA [None]
